FAERS Safety Report 7321628-5 (Version None)
Quarter: 2011Q1

REPORT INFORMATION
  Report Type: 
  Country: None (occurrence: None)
  Receive Date: 20110228
  Receipt Date: 20100922
  Transmission Date: 20110831
  Serious: No
  Sender: FDA-Public Use
  Company Number: A0882653A

PATIENT
  Age: 57 Year
  Sex: Female

DRUGS (3)
  1. PREMPRO [Concomitant]
  2. VALTREX [Suspect]
     Dosage: 1MG PER DAY
     Route: 048
     Dates: start: 20100701
  3. WELLBUTRIN [Concomitant]

REACTIONS (6)
  - FATIGUE [None]
  - RASH [None]
  - HYPERSOMNIA [None]
  - NAUSEA [None]
  - HEADACHE [None]
  - DEPRESSION [None]
